FAERS Safety Report 7452338-1 (Version None)
Quarter: 2011Q2

REPORT INFORMATION
  Report Type: 
  Country: None (occurrence: None)
  Receive Date: 20110502
  Receipt Date: 20110401
  Transmission Date: 20111010
  Serious: Yes (Death, Other)
  Sender: FDA-Public Use
  Company Number: US-BAYER-2011-009478

PATIENT
  Sex: Female

DRUGS (13)
  1. TRASYLOL [Suspect]
     Indication: PRODUCT USED FOR UNKNOWN INDICATION
     Route: 042
  2. MOTRIN [Concomitant]
     Route: 048
  3. PLAVIX [Concomitant]
     Dosage: 75 MG, QD
     Route: 048
  4. VIOXX [Concomitant]
     Dosage: 12.5 MG, QD
     Route: 048
  5. CARDIZEM CD [Concomitant]
     Dosage: 120 MG, BID
     Route: 048
  6. NEXIUM [Concomitant]
     Route: 048
  7. DARVOCET [Concomitant]
     Dosage: AS NEEDED
     Route: 048
  8. IMODIUM [Concomitant]
     Indication: DIARRHOEA
     Dosage: AS NEEDED
     Route: 048
  9. CARDIA [Concomitant]
     Dosage: 2 MG, BID
     Route: 048
  10. ARTHROTEC [Concomitant]
     Route: 048
  11. REGLAN [Concomitant]
     Dosage: 10 MG, QD
     Route: 048
  12. PERSANTINE [Concomitant]
     Dosage: 25 MG, BID
     Route: 048
  13. DIOVAN [Concomitant]
     Dosage: 160 MG, BID
     Route: 048

REACTIONS (14)
  - RENAL INJURY [None]
  - ANXIETY [None]
  - UNEVALUABLE EVENT [None]
  - DEATH [None]
  - PAIN [None]
  - ANHEDONIA [None]
  - NERVOUSNESS [None]
  - DEPRESSION [None]
  - MULTI-ORGAN FAILURE [None]
  - RENAL FAILURE [None]
  - FEAR [None]
  - INJURY [None]
  - EMOTIONAL DISTRESS [None]
  - FEAR OF DEATH [None]
